FAERS Safety Report 21485747 (Version 4)
Quarter: 2022Q4

REPORT INFORMATION
  Report Type: Spontaneous
  Country: US (occurrence: US)
  Receive Date: 20221020
  Receipt Date: 20221123
  Transmission Date: 20230113
  Serious: Yes (Hospitalization)
  Sender: FDA-Public Use
  Company Number: US-PFIZER INC-PV202200062141

PATIENT
  Age: 25 Year
  Sex: Female

DRUGS (3)
  1. SOMAVERT [Suspect]
     Active Substance: PEGVISOMANT
     Indication: Acromegaly
     Dosage: 40 MG (DAY 1 AS LOADING DOSE)
     Route: 058
     Dates: start: 20220908, end: 20220908
  2. SOMAVERT [Suspect]
     Active Substance: PEGVISOMANT
     Dosage: 10 MG, DAILY (EVERY 24 HOURS)
     Route: 058
     Dates: start: 20220908
  3. SOMAVERT [Suspect]
     Active Substance: PEGVISOMANT
     Dosage: 10 MG, DAILY (EVERY 24 HOURS)
     Route: 058
     Dates: start: 20220909

REACTIONS (4)
  - Drug ineffective [Unknown]
  - Blood glucose abnormal [Unknown]
  - Blood sodium abnormal [Unknown]
  - Blood magnesium abnormal [Unknown]
